FAERS Safety Report 7328698-9 (Version None)
Quarter: 2011Q1

REPORT INFORMATION
  Report Type: 
  Country: None (occurrence: None)
  Receive Date: 20110303
  Receipt Date: 20110222
  Transmission Date: 20110831
  Serious: No
  Sender: FDA-Public Use
  Company Number: DE-ASTRAZENECA-2010SE60761

PATIENT
  Sex: Female

DRUGS (9)
  1. SEROQUEL XR [Suspect]
     Dosage: WAS GRADUALLY REDUCED
     Route: 048
     Dates: end: 20110213
  2. SEROQUEL XR [Suspect]
     Dosage: WAS GRADUALLY REDUCED
     Route: 048
     Dates: end: 20110213
  3. DULOXETINE [Concomitant]
     Indication: DEPRESSION
     Route: 048
     Dates: start: 20100812, end: 20110111
  4. MELPERON [Concomitant]
     Indication: SLEEP DISORDER
     Route: 048
     Dates: start: 20100501
  5. PANTOPRAZOLE [Concomitant]
  6. SEROQUEL XR [Suspect]
     Indication: DELUSIONAL DISORDER, UNSPECIFIED TYPE
     Route: 048
     Dates: start: 20100101
  7. SEROQUEL XR [Suspect]
     Indication: PSYCHOTIC DISORDER
     Route: 048
     Dates: start: 20100101
  8. SEROQUEL XR [Suspect]
     Indication: DEPRESSION
     Route: 048
     Dates: start: 20100101
  9. SEROQUEL XR [Suspect]
     Dosage: WAS GRADUALLY REDUCED
     Route: 048
     Dates: end: 20110213

REACTIONS (2)
  - LEUKOPENIA [None]
  - THROMBOCYTOPENIA [None]
